FAERS Safety Report 19971893 (Version 2)
Quarter: 2021Q4

REPORT INFORMATION
  Report Type: Spontaneous
  Country: US (occurrence: US)
  Receive Date: 20211019
  Receipt Date: 20211124
  Transmission Date: 20220303
  Serious: No
  Sender: FDA-Public Use
  Company Number: US-JNJFOC-20211031800

PATIENT
  Age: 56 Year
  Sex: Male
  Weight: 64.8 kg

DRUGS (3)
  1. DARZALEX [Suspect]
     Active Substance: DARATUMUMAB
     Indication: Plasma cell myeloma
     Dosage: TWO 100 MG VIALS
     Route: 042
     Dates: start: 20210712
  2. DARZALEX [Suspect]
     Active Substance: DARATUMUMAB
     Dosage: TWO 400MG VIALS
     Route: 065
  3. PERCOCET [Concomitant]
     Active Substance: ACETAMINOPHEN\OXYCODONE HYDROCHLORIDE
     Indication: Pain
     Dosage: 10-325MG

REACTIONS (2)
  - Panic attack [Recovered/Resolved]
  - Depression [Recovered/Resolved]

NARRATIVE: CASE EVENT DATE: 20211015
